FAERS Safety Report 4900414-7 (Version None)
Quarter: 2006Q1

REPORT INFORMATION
  Report Type: 
  Country: None (occurrence: None)
  Receive Date: 20060203
  Receipt Date: 20060123
  Transmission Date: 20060701
  Serious: Yes (Other)
  Sender: FDA-Public Use
  Company Number: GB-JNJFOC-20060104719

PATIENT
  Sex: Female

DRUGS (2)
  1. TOPAMAX [Suspect]
     Indication: MIGRAINE PROPHYLAXIS
     Route: 065
  2. TOPAMAX [Suspect]
     Indication: EPILEPSY
     Route: 065

REACTIONS (2)
  - DEAFNESS [None]
  - TINNITUS [None]
